FAERS Safety Report 8765526 (Version 2)
Quarter: 2012Q4

REPORT INFORMATION
  Report Type: 
  Country: IT (occurrence: IT)
  Receive Date: 20120903
  Receipt Date: 20120912
  Transmission Date: 20130627
  Serious: Yes (Other)
  Sender: FDA-Public Use
  Company Number: IT-BRISTOL-MYERS SQUIBB COMPANY-16885923

PATIENT
  Age: 81 Year
  Sex: Female

DRUGS (1)
  1. ORENCIA FOR INJ 250 MG/VIAL [Suspect]
     Dosage: Interrupted on 3Aug12
     Route: 042
     Dates: start: 20110101

REACTIONS (1)
  - Hypertensive crisis [Recovered/Resolved]
